FAERS Safety Report 6648867-0 (Version None)
Quarter: 2010Q1

REPORT INFORMATION
  Report Type: 
  Country: None (occurrence: None)
  Receive Date: 20100324
  Receipt Date: 20100319
  Transmission Date: 20100710
  Serious: Yes (Death, Hospitalization)
  Sender: FDA-Public Use
  Company Number: PHHY2010JP06057

PATIENT
  Age: 75 Year
  Sex: Male

DRUGS (10)
  1. FAMVIR [Suspect]
     Indication: HERPES ZOSTER
     Dosage: 1500 MG PER DAY
     Route: 048
     Dates: start: 20100110, end: 20100114
  2. MECOBALAMIN [Concomitant]
     Dosage: UNK
     Dates: start: 20100110, end: 20100115
  3. TEPRENONE [Concomitant]
     Dosage: UNK
     Dates: start: 20100110, end: 20100115
  4. BUFEXAMAC [Concomitant]
     Dosage: UNK
     Dates: start: 20100110, end: 20100115
  5. SPIRONOLACTONE [Concomitant]
     Dosage: UNK
     Dates: end: 20100206
  6. FUROSEMIDE [Concomitant]
  7. WARFARIN POTASSIUM [Concomitant]
     Dosage: UNK
     Dates: end: 20100129
  8. ASPIRIN [Concomitant]
  9. METILDIGOXIN [Concomitant]
     Dosage: UNK
  10. VERAPAMIL HYDROCHLORIDE [Concomitant]

REACTIONS (20)
  - ABDOMINAL PAIN [None]
  - ALANINE AMINOTRANSFERASE INCREASED [None]
  - ALTERED STATE OF CONSCIOUSNESS [None]
  - ASPARTATE AMINOTRANSFERASE INCREASED [None]
  - BLOOD ALKALINE PHOSPHATASE INCREASED [None]
  - BLOOD BILIRUBIN INCREASED [None]
  - BLOOD LACTATE DEHYDROGENASE INCREASED [None]
  - CEREBRAL INFARCTION [None]
  - CONVULSION [None]
  - DECREASED APPETITE [None]
  - DIARRHOEA [None]
  - FACE OEDEMA [None]
  - GAMMA-GLUTAMYLTRANSFERASE INCREASED [None]
  - HENOCH-SCHONLEIN PURPURA [None]
  - INTESTINAL OPERATION [None]
  - LEUKOCYTOCLASTIC VASCULITIS [None]
  - OXYGEN SATURATION DECREASED [None]
  - SEPSIS [None]
  - SMALL INTESTINAL PERFORATION [None]
  - WHITE BLOOD CELL COUNT INCREASED [None]
